FAERS Safety Report 7607777-2 (Version None)
Quarter: 2011Q3

REPORT INFORMATION
  Report Type: 
  Country: None (occurrence: None)
  Receive Date: 20110713
  Receipt Date: 20110607
  Transmission Date: 20111222
  Serious: Yes (Other)
  Sender: FDA-Public Use
  Company Number: PHHY2011VE51426

PATIENT
  Sex: Female

DRUGS (1)
  1. EXFORGE [Suspect]
     Indication: MYALGIA
     Dosage: UNK
     Dates: start: 20101101

REACTIONS (2)
  - TOXICITY TO VARIOUS AGENTS [None]
  - ABDOMINAL PAIN [None]
